FAERS Safety Report 14516756 (Version 7)
Quarter: 2019Q1

REPORT INFORMATION
  Report Type: Report from Study
  Country: CA (occurrence: CA)
  Receive Date: 20180212
  Receipt Date: 20190226
  Transmission Date: 20190417
  Serious: Yes (Other)
  Sender: FDA-Public Use
  Company Number: CA-BRISTOL-MYERS SQUIBB COMPANY-BMS-2017-038863

PATIENT
  Age: 85 Year
  Sex: Female

DRUGS (2)
  1. ABATACEPT [Suspect]
     Active Substance: ABATACEPT
     Indication: PRODUCT USED FOR UNKNOWN INDICATION
     Dosage: 1 DF, Q4WK
     Route: 065
  2. ABATACEPT [Suspect]
     Active Substance: ABATACEPT
     Indication: RHEUMATOID ARTHRITIS
     Dosage: 500 MG, Q4WK
     Route: 042
     Dates: start: 20130515

REACTIONS (17)
  - Fall [Recovering/Resolving]
  - Feeling abnormal [Unknown]
  - Abdominal discomfort [Unknown]
  - Diarrhoea [Recovered/Resolved]
  - Headache [Unknown]
  - Drug ineffective [Unknown]
  - Asthenia [Unknown]
  - Constipation [Unknown]
  - Tooth disorder [Unknown]
  - Fibromyalgia [Unknown]
  - Blood calcium increased [Unknown]
  - Nervous system disorder [Unknown]
  - Osteoarthritis [Unknown]
  - Malaise [Unknown]
  - Fatigue [Unknown]
  - Skin laceration [Unknown]
  - Volume blood decreased [Unknown]

NARRATIVE: CASE EVENT DATE: 20170620
